FAERS Safety Report 9763988 (Version 1)
Quarter: 2013Q4

REPORT INFORMATION
  Report Type: Spontaneous
  Country: US (occurrence: US)
  Receive Date: 20131216
  Receipt Date: 20131216
  Transmission Date: 20140711
  Serious: No
  Sender: FDA-Public Use
  Company Number: US-BIOGENIDEC-2013BI115585

PATIENT
  Age: 24 Year
  Sex: Female
  Weight: 117 kg

DRUGS (5)
  1. TECFIDERA [Suspect]
     Indication: MULTIPLE SCLEROSIS
     Route: 048
  2. DEXAMETHASONE [Concomitant]
  3. ZYRTEC [Concomitant]
  4. ADVIL [Concomitant]
  5. PROZAC [Concomitant]

REACTIONS (3)
  - Muscular weakness [Not Recovered/Not Resolved]
  - Pain in extremity [Not Recovered/Not Resolved]
  - Fatigue [Not Recovered/Not Resolved]
